FAERS Safety Report 6356284-6 (Version None)
Quarter: 2009Q3

REPORT INFORMATION
  Report Type: 
  Country: None (occurrence: None)
  Receive Date: 20090915
  Receipt Date: 20090910
  Transmission Date: 20100115
  Serious: Yes (Other)
  Sender: FDA-Public Use
  Company Number: US-KINGPHARMUSA00001-K200901114

PATIENT
  Age: 68 Year
  Sex: Female

DRUGS (3)
  1. ALTACE [Suspect]
     Route: 048
  2. HYDROCHLOROTHIAZIDE [Suspect]
     Route: 048
  3. COAPROVEL [Suspect]
     Dosage: 150/12.5 MG, QD
     Route: 048

REACTIONS (3)
  - MUSCULOSKELETAL DISCOMFORT [None]
  - MYASTHENIA GRAVIS [None]
  - VISUAL FIELD DEFECT [None]
